FAERS Safety Report 7218199-0 (Version None)
Quarter: 2011Q1

REPORT INFORMATION
  Report Type: 
  Country: None (occurrence: None)
  Receive Date: 20110110
  Receipt Date: 20110104
  Transmission Date: 20110831
  Serious: Yes (Life-Threatening, Hospitalization)
  Sender: FDA-Public Use
  Company Number: DE-ASTRAZENECA-2011SE00410

PATIENT
  Age: 72 Year
  Sex: Female
  Weight: 100 kg

DRUGS (8)
  1. LEVOTHYROXINE SODIUM [Concomitant]
     Indication: THYROID DISORDER
     Route: 050
  2. BISOPROLOL [Concomitant]
     Indication: BLOOD PRESSURE
     Route: 050
  3. SIMVASTATIN [Concomitant]
     Indication: HYPERCHOLESTEROLAEMIA
     Route: 050
  4. ARIMIDEX [Suspect]
     Indication: BREAST CANCER
     Route: 048
     Dates: start: 20100904
  5. PANTOZOL [Concomitant]
     Indication: GASTRITIS PROPHYLAXIS
     Route: 050
  6. ASPIRIN [Concomitant]
     Route: 050
  7. TOREM [Concomitant]
     Indication: CORONARY ARTERY DISEASE
     Route: 050
  8. RAMIPRIL [Concomitant]
     Indication: BLOOD PRESSURE
     Route: 050

REACTIONS (1)
  - IATROGENIC INJURY [None]
